FAERS Safety Report 14773371 (Version 1)
Quarter: 2018Q2

REPORT INFORMATION
  Report Type: Report from Study
  Country: JP (occurrence: JP)
  Receive Date: 20180418
  Receipt Date: 20180418
  Transmission Date: 20180711
  Serious: Yes (Death, Life-Threatening, Other)
  Sender: FDA-Public Use
  Company Number: JP-ACCORD-065661

PATIENT
  Sex: Male

DRUGS (5)
  1. CICLOSPORIN [Suspect]
     Active Substance: CYCLOSPORINE
     Indication: STILL^S DISEASE
  2. PEGINTERFERON ALFA-2B [Concomitant]
     Active Substance: PEGINTERFERON ALFA-2B
     Indication: HEPATITIS C
  3. TACROLIMUS. [Suspect]
     Active Substance: TACROLIMUS
     Indication: IMMUNOSUPPRESSANT DRUG THERAPY
  4. RIBAVIRIN. [Concomitant]
     Active Substance: RIBAVIRIN
     Indication: HEPATITIS C
  5. METHYLPREDNISOLONE. [Suspect]
     Active Substance: METHYLPREDNISOLONE
     Indication: STILL^S DISEASE
     Dosage: PULSE THERAPY

REACTIONS (3)
  - Respiratory failure [Fatal]
  - Pneumonia [Fatal]
  - Multiple organ dysfunction syndrome [Fatal]
